FAERS Safety Report 6693270-0 (Version None)
Quarter: 2010Q2

REPORT INFORMATION
  Report Type: 
  Country: None (occurrence: None)
  Receive Date: 20100422
  Receipt Date: 20100419
  Transmission Date: 20101027
  Serious: Yes (Hospitalization)
  Sender: FDA-Public Use
  Company Number: FR-MERCK-1004FRA00078

PATIENT
  Age: 47 Year
  Sex: Female

DRUGS (29)
  1. CANCIDAS [Suspect]
     Indication: ENTEROBACTER INFECTION
     Route: 042
     Dates: start: 20100222, end: 20100225
  2. CANCIDAS [Suspect]
     Indication: BACTEROIDES INFECTION
     Route: 042
     Dates: start: 20100222, end: 20100225
  3. AUGMENTIN '125' [Suspect]
     Indication: ENTEROBACTER INFECTION
     Route: 042
     Dates: start: 20100219, end: 20100224
  4. AUGMENTIN '125' [Suspect]
     Indication: BACTEROIDES INFECTION
     Route: 042
     Dates: start: 20100219, end: 20100224
  5. OMEPRAZOLE [Suspect]
     Route: 042
     Dates: start: 20100219, end: 20100302
  6. SUFENTANIL CITRATE [Suspect]
     Route: 042
     Dates: start: 20100219, end: 20100302
  7. ACUPAN [Suspect]
     Route: 042
     Dates: start: 20100220, end: 20100221
  8. HUMALOG [Suspect]
     Route: 058
     Dates: start: 20100219
  9. ATARAX (ALPRAZOLAM) [Suspect]
     Route: 042
     Dates: start: 20100220, end: 20100220
  10. LOVENOX [Suspect]
     Route: 058
     Dates: start: 20100220, end: 20100226
  11. GENTALLINE [Suspect]
     Route: 042
     Dates: start: 20100222, end: 20100223
  12. NIMBEX [Suspect]
     Route: 042
     Dates: start: 20100222, end: 20100224
  13. VECTARION [Suspect]
     Route: 042
     Dates: start: 20100222, end: 20100224
  14. KETAMINE HYDROCHLORIDE [Suspect]
     Route: 042
     Dates: start: 20100219, end: 20100219
  15. INSULIN, NEUTRAL [Suspect]
     Route: 065
     Dates: start: 20100219, end: 20100219
  16. ROCURONIUM BROMIDE [Suspect]
     Route: 042
     Dates: start: 20100219, end: 20100219
  17. TRACRIUM [Suspect]
     Route: 042
     Dates: start: 20100219, end: 20100219
  18. HYPNOVEL [Suspect]
     Route: 042
     Dates: start: 20100219, end: 20100219
  19. SIR EPHEDRIN [Suspect]
     Route: 042
     Dates: start: 20100219, end: 20100219
  20. PROPOFOL-ICI [Suspect]
     Route: 042
     Dates: start: 20100219, end: 20100302
  21. METFORMIN [Concomitant]
     Route: 065
  22. PRAVASTATIN [Concomitant]
     Route: 065
  23. ANAFRANIL [Concomitant]
     Route: 065
  24. SERESTA [Concomitant]
     Route: 065
  25. LARGACTIL [Concomitant]
     Route: 065
  26. TARDYFERON [Concomitant]
     Route: 065
  27. TAZOCILLINE [Concomitant]
     Indication: ENTEROBACTER INFECTION
     Route: 065
     Dates: start: 20100201
  28. TAZOCILLINE [Concomitant]
     Indication: BACTEROIDES INFECTION
     Route: 065
     Dates: start: 20100201
  29. ARTICHOKE [Concomitant]
     Route: 048

REACTIONS (1)
  - STEVENS-JOHNSON SYNDROME [None]
